FAERS Safety Report 6769014-0 (Version None)
Quarter: 2010Q2

REPORT INFORMATION
  Report Type: 
  Country: None (occurrence: None)
  Receive Date: 20100615
  Receipt Date: 20100607
  Transmission Date: 20101027
  Serious: No
  Sender: FDA-Public Use
  Company Number: US-BIOGENIDEC-2010BI019313

PATIENT
  Age: 75 Year
  Sex: Female

DRUGS (2)
  1. TYSABRI [Suspect]
     Indication: CROHN'S DISEASE
     Route: 042
     Dates: start: 20080630, end: 20080730
  2. TYSABRI [Suspect]
     Route: 042
     Dates: start: 20100127, end: 20100607

REACTIONS (1)
  - DRUG INEFFECTIVE [None]
